FAERS Safety Report 11699619 (Version 2)
Quarter: 2015Q4

REPORT INFORMATION
  Report Type: Report from Study
  Country: US (occurrence: US)
  Receive Date: 20151105
  Receipt Date: 20151210
  Transmission Date: 20160304
  Serious: Yes (Other)
  Sender: FDA-Public Use
  Company Number: US-009507513-1511USA001890

PATIENT

DRUGS (2)
  1. TEMOZOLOMIDE. [Suspect]
     Active Substance: TEMOZOLOMIDE
     Indication: HEPATOCELLULAR CARCINOMA
     Dosage: 150 MG/M2 DAILY ON DAYS 1-5 OF A 28-DAY CYCLE
     Route: 048
  2. ABT-888 [Suspect]
     Active Substance: VELIPARIB
     Indication: HEPATOCELLULAR CARCINOMA
     Dosage: 40 MG, DAILY ON DAYS 1-7 IN 28-DAY CYCLES
     Route: 048

REACTIONS (3)
  - Vomiting [Unknown]
  - Mallory-Weiss syndrome [Unknown]
  - Nausea [Unknown]
